FAERS Safety Report 8770059 (Version 4)
Quarter: 2013Q3

REPORT INFORMATION
  Report Type: Spontaneous
  Country: ES (occurrence: ES)
  Receive Date: 20120906
  Receipt Date: 20130813
  Transmission Date: 20140515
  Serious: Yes (Life-Threatening, Hospitalization, Other)
  Sender: FDA-Public Use
  Company Number: ES-GENZYME-THYM-1003402

PATIENT
  Age: 22 Year
  Sex: Male
  Weight: 87 kg

DRUGS (3)
  1. THYMOGLOBULINE [Suspect]
     Indication: BONE MARROW CONDITIONING REGIMEN
     Dosage: 200 UNK, QD
     Route: 042
     Dates: start: 20110506, end: 20110508
  2. FLUDARA [Suspect]
     Indication: BONE MARROW CONDITIONING REGIMEN
     Dosage: UNK, QD
     Route: 042
     Dates: start: 20110504, end: 20110507
  3. CYCLOPHOSPHAMIDE [Concomitant]
     Indication: BONE MARROW CONDITIONING REGIMEN
     Dosage: UNK
     Route: 042
     Dates: start: 20110504, end: 20110507

REACTIONS (9)
  - Grand mal convulsion [Recovered/Resolved]
  - Pleural effusion [Unknown]
  - Subdural haematoma [Unknown]
  - Encephalopathy [Unknown]
  - Febrile neutropenia [Unknown]
  - Post transplant lymphoproliferative disorder [Recovered/Resolved]
  - Epstein-Barr virus test positive [Unknown]
  - Tooth abscess [Unknown]
  - Pneumonia bacterial [Unknown]
